FAERS Safety Report 22281090 (Version 1)
Quarter: 2023Q2

REPORT INFORMATION
  Report Type: Spontaneous
  Country: US (occurrence: US)
  Receive Date: 20230504
  Receipt Date: 20230504
  Transmission Date: 20230722
  Serious: Yes (Other)
  Sender: FDA-Public Use
  Company Number: US-ROCHE-3332799

PATIENT
  Age: 59 Year
  Sex: Female

DRUGS (9)
  1. CLONAZEPAM [Suspect]
     Active Substance: CLONAZEPAM
     Indication: Product used for unknown indication
     Dosage: FREQUENCY:TWICE 1 DAY
     Route: 048
  2. OCREVUS [Suspect]
     Active Substance: OCRELIZUMAB
     Indication: Relapsing-remitting multiple sclerosis
     Dosage: FREQUENCY: I IN 6 MONTH
     Route: 042
  3. VITAMIN D3 [Concomitant]
     Active Substance: CHOLECALCIFEROL
  4. CITALOPRAM [Concomitant]
     Active Substance: CITALOPRAM HYDROBROMIDE
  5. GABAPENTIN [Concomitant]
     Active Substance: GABAPENTIN
  6. PREDNISONE [Concomitant]
     Active Substance: PREDNISONE
  7. LYRICA [Concomitant]
     Active Substance: PREGABALIN
  8. TRAMADOL [Concomitant]
     Active Substance: TRAMADOL
  9. DETROL LA [Concomitant]
     Active Substance: TOLTERODINE TARTRATE

REACTIONS (15)
  - Fall [Unknown]
  - Clumsiness [Unknown]
  - Blindness [Unknown]
  - Pain [Unknown]
  - Tremor [Unknown]
  - Gait disturbance [Unknown]
  - Anxiety [Unknown]
  - Depression [Unknown]
  - Somnolence [Unknown]
  - Snoring [Unknown]
  - Underweight [Unknown]
  - Anion gap decreased [Unknown]
  - Alanine aminotransferase decreased [Unknown]
  - Lymphocyte count decreased [Unknown]
  - Neutrophil count decreased [Unknown]
